FAERS Safety Report 17754488 (Version 9)
Quarter: 2021Q1

REPORT INFORMATION
  Report Type: Report from Study
  Country: US (occurrence: US)
  Receive Date: 20200507
  Receipt Date: 20210130
  Transmission Date: 20210419
  Serious: Yes (Other)
  Sender: FDA-Public Use
  Company Number: NVSC2020US122458

PATIENT
  Age: 57 Year
  Sex: Female

DRUGS (3)
  1. MAYZENT [Suspect]
     Active Substance: SIPONIMOD
     Indication: PRODUCT USED FOR UNKNOWN INDICATION
     Dosage: 2 MG, QD
     Route: 048
  2. MAYZENT [Suspect]
     Active Substance: SIPONIMOD
     Dosage: 2 MG/KG, QD
     Route: 048
  3. MAYZENT [Suspect]
     Active Substance: SIPONIMOD
     Dosage: 2 MG, QD
     Route: 048

REACTIONS (22)
  - Pain of skin [Unknown]
  - Rash macular [Unknown]
  - Pain [Unknown]
  - Malaise [Recovering/Resolving]
  - Weight decreased [Unknown]
  - Nasal congestion [Unknown]
  - Back pain [Unknown]
  - Burning sensation [Unknown]
  - Memory impairment [Unknown]
  - Hyperhidrosis [Unknown]
  - Nausea [Unknown]
  - Multiple sclerosis [Unknown]
  - Fall [Unknown]
  - Renal disorder [Unknown]
  - Headache [Unknown]
  - Fatigue [Unknown]
  - Hypoaesthesia [Unknown]
  - Herpes zoster [Unknown]
  - Diarrhoea [Unknown]
  - Hepatic enzyme increased [Unknown]
  - Immune system disorder [Unknown]
  - Rhinorrhoea [Unknown]

NARRATIVE: CASE EVENT DATE: 20200910
